FAERS Safety Report 10601607 (Version 5)
Quarter: 2015Q2

REPORT INFORMATION
  Report Type: Spontaneous
  Country: US (occurrence: US)
  Receive Date: 20141124
  Receipt Date: 20150402
  Transmission Date: 20150821
  Serious: Yes (Death, Hospitalization, Other)
  Sender: FDA-Public Use
  Company Number: US-PFIZER INC-2014319219

PATIENT
  Age: 44 Year
  Sex: Male
  Weight: 109 kg

DRUGS (10)
  1. BIOPATCH [Suspect]
     Active Substance: CHLORHEXIDINE GLUCONATE
     Dosage: UNK
  2. AMBRISENTAN [Suspect]
     Active Substance: AMBRISENTAN
     Indication: PULMONARY ARTERIAL HYPERTENSION
     Dosage: 10 MG, QD
     Route: 048
  3. FLOLAN [Suspect]
     Active Substance: EPOPROSTENOL SODIUM
     Indication: PULMONARY ARTERIAL HYPERTENSION
     Dosage: 9 NG/KG/MIN, CONCENTRATION 30,000NG/ML, PUMP RATE 46 ML/DAY,VIAL STRENGTH 1.5MG)
     Route: 042
     Dates: start: 20140729
  4. FLOLAN [Suspect]
     Active Substance: EPOPROSTENOL SODIUM
     Dosage: 11 NG/KG/MIN AT CONCENTRATION 30,000 NG/ML, PUMP RATE 56M/DAY AND VIAL STRENGTH OF 1.5 MG
     Route: 042
  5. FLOLAN [Suspect]
     Active Substance: EPOPROSTENOL SODIUM
     Dosage: 9 NG/KG/MIN, CONCENTRATION 30,000NG/ML,PUMP RATE 46 ML/DAY,VIAL STRENGTH 1.5MG)
     Route: 042
     Dates: start: 20140803
  6. OXYGEN. [Concomitant]
     Active Substance: OXYGEN
     Dosage: UNK
  7. CHLORAPREP [Suspect]
     Active Substance: CHLORHEXIDINE GLUCONATE\ISOPROPYL ALCOHOL
     Dosage: UNK
  8. REVATIO [Suspect]
     Active Substance: SILDENAFIL CITRATE
     Dosage: 80 MG 3X/DAY (TID)
     Route: 048
  9. REVATIO [Suspect]
     Active Substance: SILDENAFIL CITRATE
     Dosage: 80 MG, QD
     Route: 048
  10. FLOLAN [Suspect]
     Active Substance: EPOPROSTENOL SODIUM
     Dosage: 12 NG/KG/MIN
     Route: 042

REACTIONS (23)
  - Sepsis [Fatal]
  - Catheter site discharge [Not Recovered/Not Resolved]
  - Catheter site pruritus [Not Recovered/Not Resolved]
  - Catheter site inflammation [Unknown]
  - Catheter site rash [Recovering/Resolving]
  - Retching [Fatal]
  - Fluid retention [Unknown]
  - Condition aggravated [Unknown]
  - Vomiting [Unknown]
  - Bradycardia [Fatal]
  - Infection [Unknown]
  - Dyspnoea [Unknown]
  - Epistaxis [Recovered/Resolved]
  - Acute kidney injury [Fatal]
  - Cardiac arrest [Fatal]
  - Pyrexia [Recovered/Resolved with Sequelae]
  - Hypoxia [Unknown]
  - Diarrhoea [Recovered/Resolved]
  - Device related infection [Fatal]
  - Infusion site vesicles [Not Recovered/Not Resolved]
  - Hypotension [Unknown]
  - Syncope [Fatal]
  - Pulmonary oedema [Unknown]

NARRATIVE: CASE EVENT DATE: 201409
